FAERS Safety Report 18383521 (Version 1)
Quarter: 2020Q4

REPORT INFORMATION
  Report Type: Spontaneous
  Country: US (occurrence: US)
  Receive Date: 20201014
  Receipt Date: 20201014
  Transmission Date: 20210114
  Serious: No
  Sender: FDA-Public Use
  Company Number: US-BAYER-2020-220773

PATIENT
  Age: 26 Year
  Sex: Female

DRUGS (1)
  1. MIRENA [Suspect]
     Active Substance: LEVONORGESTREL
     Indication: CONTRACEPTION
     Dosage: 20 ?G PER DAY, CONTINUOUSLY
     Route: 015
     Dates: start: 201612

REACTIONS (7)
  - Mood swings [Not Recovered/Not Resolved]
  - Loss of libido [Not Recovered/Not Resolved]
  - Acne [Not Recovered/Not Resolved]
  - Visual impairment [Not Recovered/Not Resolved]
  - Vulvovaginal dryness [Not Recovered/Not Resolved]
  - Depression [None]
  - Tinnitus [Not Recovered/Not Resolved]
